FAERS Safety Report 10393534 (Version 6)
Quarter: 2014Q4

REPORT INFORMATION
  Report Type: Spontaneous
  Country: US (occurrence: US)
  Receive Date: 20140819
  Receipt Date: 20141030
  Transmission Date: 20150528
  Serious: Yes (Death, Life-Threatening, Hospitalization)
  Sender: FDA-Public Use
  Company Number: US-ACTELION-A-US2014-103586

PATIENT
  Age: 59 Year
  Sex: Female

DRUGS (4)
  1. REMODULIN [Concomitant]
     Active Substance: TREPROSTINIL
     Dosage: 6 NG/KG, CONT INFUS
     Dates: start: 20140711
  2. SILDENAFIL. [Concomitant]
     Active Substance: SILDENAFIL
  3. TRACLEER [Suspect]
     Active Substance: BOSENTAN\BOSENTAN MONOHYDRATE
     Indication: PULMONARY HYPERTENSION
     Dosage: 125 MG, BID
     Route: 048
     Dates: end: 20141017
  4. COUMADIN [Concomitant]
     Active Substance: WARFARIN SODIUM

REACTIONS (17)
  - Gallbladder pain [Not Recovered/Not Resolved]
  - Malaise [Recovering/Resolving]
  - Dizziness [Unknown]
  - Hypotension [Fatal]
  - Pulmonary hypertension [Fatal]
  - Renal failure [Not Recovered/Not Resolved]
  - Renal tubular necrosis [Recovering/Resolving]
  - Chronic kidney disease [Not Recovered/Not Resolved]
  - Cholecystitis [Not Recovered/Not Resolved]
  - Acute respiratory failure [Recovering/Resolving]
  - Abdominal pain [Not Recovered/Not Resolved]
  - Disease progression [Fatal]
  - Multi-organ failure [Not Recovered/Not Resolved]
  - Catheter site haemorrhage [Recovering/Resolving]
  - Dialysis [Recovering/Resolving]
  - Bile duct stone [Not Recovered/Not Resolved]
  - Nausea [Not Recovered/Not Resolved]

NARRATIVE: CASE EVENT DATE: 20140804
